FAERS Safety Report 17460332 (Version 3)
Quarter: 2020Q1

REPORT INFORMATION
  Report Type: Spontaneous
  Country: US (occurrence: US)
  Receive Date: 20200225
  Receipt Date: 20200318
  Transmission Date: 20200409
  Serious: Yes (Hospitalization)
  Sender: FDA-Public Use
  Company Number: US-SHIRE-US201938385

PATIENT
  Age: 63 Year
  Sex: Male

DRUGS (2)
  1. GATTEX [Suspect]
     Active Substance: TEDUGLUTIDE\WATER
     Indication: SHORT-BOWEL SYNDROME
     Dosage: 3.42 MILLIGRAM, 1X/DAY:QD
     Route: 058
     Dates: start: 20191101
  2. GATTEX [Suspect]
     Active Substance: TEDUGLUTIDE\WATER
     Dosage: 0.342 MILLIGRAM, 1X/DAY:QD
     Route: 058
     Dates: start: 20191104

REACTIONS (6)
  - Injection site pain [Recovered/Resolved]
  - Obstruction [Recovering/Resolving]
  - Anxiety [Unknown]
  - Gastrointestinal disorder [Not Recovered/Not Resolved]
  - Product dose omission [Not Recovered/Not Resolved]
  - Syringe issue [Unknown]

NARRATIVE: CASE EVENT DATE: 20191108
